FAERS Safety Report 15288042 (Version 2)
Quarter: 2018Q3

REPORT INFORMATION
  Report Type: Spontaneous
  Country: US (occurrence: US)
  Receive Date: 20180817
  Receipt Date: 20180829
  Transmission Date: 20181010
  Serious: Yes (Hospitalization, Other)
  Sender: FDA-Public Use
  Company Number: US-TEVA-2018-US-943185

PATIENT
  Age: 76 Year
  Sex: Female

DRUGS (1)
  1. CEFALEXIN [Suspect]
     Active Substance: CEPHALEXIN
     Indication: INFECTION
     Route: 048
     Dates: start: 20180805, end: 20180805

REACTIONS (10)
  - Syncope [Unknown]
  - Oral discomfort [Unknown]
  - Eye movement disorder [Unknown]
  - Injury [Unknown]
  - Urticaria [Unknown]
  - Laceration [Unknown]
  - Paraesthesia oral [Unknown]
  - Diarrhoea [Unknown]
  - Hot flush [Unknown]
  - Rash [Unknown]

NARRATIVE: CASE EVENT DATE: 20180805
